FAERS Safety Report 10301139 (Version 1)
Quarter: 2014Q3

REPORT INFORMATION
  Report Type: Spontaneous
  Country: FR (occurrence: FR)
  Receive Date: 20140714
  Receipt Date: 20140714
  Transmission Date: 20150326
  Serious: Yes (Hospitalization, Other)
  Sender: FDA-Public Use
  Company Number: FR-PFIZER INC-2014192170

PATIENT
  Age: 54 Year
  Sex: Male

DRUGS (12)
  1. PREDNISONE. [Concomitant]
     Active Substance: PREDNISONE
     Dosage: UNK
     Dates: start: 2011
  2. LEVEMIR [Concomitant]
     Active Substance: INSULIN DETEMIR
     Dosage: 35 IU, 1X/DAY IN THE MORNING
  3. BACTRIM [Suspect]
     Active Substance: SULFAMETHOXAZOLE\TRIMETHOPRIM
     Dosage: 1 DF, 1X/DAY
     Dates: start: 201304
  4. INEXIUM [Concomitant]
     Active Substance: ESOMEPRAZOLE
     Dosage: 20 MG, DAILY
     Dates: start: 2011
  5. IMUREL [Suspect]
     Active Substance: AZATHIOPRINE SODIUM
     Dosage: 50 MG, 3X/DAY
     Dates: start: 201309
  6. ERYTHROMYCIN. [Concomitant]
     Active Substance: ERYTHROMYCIN
     Dosage: 500 MG, 1X/DAY
     Dates: start: 2011
  7. NOVORAPID [Concomitant]
     Active Substance: INSULIN ASPART
     Dosage: 6, 12, 10 IU
     Dates: start: 2013
  8. ROVALCYTE [Suspect]
     Active Substance: VALGANCICLOVIR HYDROCHLORIDE
     Dosage: 450 MG, 2X/DAY
     Route: 048
     Dates: start: 201304
  9. PREVISCAN [Suspect]
     Active Substance: FLUINDIONE
     Dosage: 20 MG, 1X/DAY
     Dates: start: 201304
  10. PREDNISONE. [Concomitant]
     Active Substance: PREDNISONE
     Dosage: 12 MG, UNK
     Dates: start: 201405
  11. LYRICA [Suspect]
     Active Substance: PREGABALIN
     Dosage: 150 MG IN THE MORNING AND 200 MG IN THE EVENING
     Dates: start: 201304
  12. PREDNISONE. [Concomitant]
     Active Substance: PREDNISONE
     Dosage: 60 MG, UNK
     Dates: start: 201304

REACTIONS (2)
  - Macrocytosis [Unknown]
  - Neuralgia [Unknown]

NARRATIVE: CASE EVENT DATE: 201312
